FAERS Safety Report 24221096 (Version 2)
Quarter: 2024Q3

REPORT INFORMATION
  Report Type: Spontaneous
  Country: DE (occurrence: DE)
  Receive Date: 20240819
  Receipt Date: 20240904
  Transmission Date: 20241017
  Serious: No
  Sender: AMGEN
  Company Number: DE-AMGEN-DEUSP2024159840

PATIENT
  Sex: Female

DRUGS (2)
  1. ARANESP [Suspect]
     Active Substance: DARBEPOETIN ALFA
     Indication: Plasma cell myeloma
     Dosage: 150 MICROGRAM, QWK
     Route: 065
  2. ARANESP [Suspect]
     Active Substance: DARBEPOETIN ALFA
     Indication: Pancytopenia

REACTIONS (3)
  - Therapy non-responder [Unknown]
  - Haemoglobin decreased [Unknown]
  - Blood erythropoietin increased [Unknown]
